FAERS Safety Report 9920176 (Version 1)
Quarter: 2014Q1

REPORT INFORMATION
  Report Type: Spontaneous
  Country: US (occurrence: US)
  Receive Date: 20140224
  Receipt Date: 20140224
  Transmission Date: 20141002
  Serious: Yes (Hospitalization)
  Sender: FDA-Public Use
  Company Number: US-BAXTER-2011BH016305

PATIENT
  Sex: Male

DRUGS (1)
  1. FEIBA : FEIBA_NANOFILTRATION_1000 UNITS/VIAL_POWDER FOR SOLUTION FOR I [Suspect]
     Indication: PRODUCT USED FOR UNKNOWN INDICATION
     Route: 065

REACTIONS (1)
  - Deep vein thrombosis [Unknown]
